FAERS Safety Report 8128674-2 (Version None)
Quarter: 2012Q1

REPORT INFORMATION
  Report Type: 
  Country: None (occurrence: None)
  Receive Date: 20120210
  Receipt Date: 20110921
  Transmission Date: 20120608
  Serious: Yes (Other)
  Sender: FDA-Public Use
  Company Number: US-BRISTOL-MYERS SQUIBB COMPANY-14950612

PATIENT
  Sex: Female

DRUGS (2)
  1. REMICADE [Suspect]
     Dosage: LYOPHILIZED POWDER
     Route: 042
  2. ORENCIA [Suspect]

REACTIONS (2)
  - SEPSIS [None]
  - DRUG INEFFECTIVE [None]
